FAERS Safety Report 20955017 (Version 1)
Quarter: 2022Q2

REPORT INFORMATION
  Report Type: Spontaneous
  Country: GB (occurrence: GB)
  Receive Date: 20220614
  Receipt Date: 20220614
  Transmission Date: 20220721
  Serious: No
  Sender: FDA-Public Use
  Company Number: None

PATIENT
  Age: 38 Year
  Sex: Female

DRUGS (1)
  1. SOLIFENACIN [Suspect]
     Active Substance: SOLIFENACIN
     Indication: Hypertonic bladder
     Dosage: 5 MILLIGRAM
     Route: 065
     Dates: start: 20220427, end: 20220429

REACTIONS (1)
  - Orgasm abnormal [Not Recovered/Not Resolved]

NARRATIVE: CASE EVENT DATE: 20220428
